FAERS Safety Report 4969342-5 (Version None)
Quarter: 2006Q2

REPORT INFORMATION
  Report Type: 
  Country: None (occurrence: None)
  Receive Date: 20060405
  Receipt Date: 20060328
  Transmission Date: 20061013
  Serious: Yes (Other)
  Sender: FDA-Public Use
  Company Number: 2006043960

PATIENT
  Age: 68 Year
  Sex: Female

DRUGS (3)
  1. ZOLOFT [Suspect]
     Indication: ILL-DEFINED DISORDER
  2. PEGASYS [Suspect]
     Indication: ILL-DEFINED DISORDER
  3. RIBAVIRIN [Suspect]
     Indication: ILL-DEFINED DISORDER

REACTIONS (3)
  - PARAESTHESIA ORAL [None]
  - THROAT TIGHTNESS [None]
  - TONGUE DISORDER [None]
